FAERS Safety Report 9858269 (Version 2)
Quarter: 2014Q1

REPORT INFORMATION
  Report Type: Report from Study
  Country: US (occurrence: US)
  Receive Date: 20140131
  Receipt Date: 20140219
  Transmission Date: 20141002
  Serious: Yes (Hospitalization)
  Sender: FDA-Public Use
  Company Number: US-JNJFOC-20140115097

PATIENT
  Age: 16 Year
  Sex: Female
  Weight: 50.2 kg

DRUGS (16)
  1. REMICADE [Suspect]
     Indication: CROHN^S DISEASE
     Route: 042
     Dates: start: 200805, end: 20090317
  2. ZOFRAN [Concomitant]
     Route: 048
  3. FERROUS SULFATE [Concomitant]
     Dosage: 65 MG IRON
     Route: 065
  4. DIFFERIN [Concomitant]
     Route: 065
  5. BACITRACIN [Concomitant]
     Route: 061
  6. BENTYL [Concomitant]
     Route: 065
  7. BENZACLIN [Concomitant]
     Dosage: 1-5%
     Route: 061
  8. VITAMIN D3 [Concomitant]
     Route: 065
  9. FOLIC ACID [Concomitant]
     Route: 065
  10. MULTIVITAMINS [Concomitant]
     Dosage: TEEN GIRLS MULTIVITAMIN
     Route: 065
  11. KENALOG [Concomitant]
     Dosage: DOSE: 0.1 (UNITS UNSPECIFIED)
     Route: 065
  12. TRI-SPRINTEC [Concomitant]
     Route: 065
  13. METHOTREXATE [Concomitant]
     Route: 065
  14. PREDNISONE [Concomitant]
     Route: 065
  15. CIMZIA [Concomitant]
     Route: 065
     Dates: start: 20140104, end: 201401
  16. CIMZIA [Concomitant]
     Route: 065
     Dates: start: 20110722

REACTIONS (1)
  - Crohn^s disease [Recovered/Resolved]
